FAERS Safety Report 8308980-9 (Version None)
Quarter: 2012Q1

REPORT INFORMATION
  Report Type: 
  Country: None (occurrence: None)
  Receive Date: 20120327
  Receipt Date: 20110221
  Transmission Date: 20120608
  Serious: Yes (Other)
  Sender: FDA-Public Use
  Company Number: PHHY2011US15076

PATIENT
  Sex: Male

DRUGS (12)
  1. GLEEVEC [Suspect]
     Dosage: 400 MG, QD, ORAL
     Route: 048
  2. ASPIRIN [Concomitant]
  3. PRILOSEC [Concomitant]
  4. WARFARIN SODIUM [Concomitant]
  5. XOLAIR [Concomitant]
  6. IMDUR [Concomitant]
  7. SINGULAIR [Concomitant]
  8. POTASSIUM CHLORIDE [Concomitant]
  9. ADVAIR HFA [Concomitant]
  10. LEVOTHYROXINE SODIUM [Concomitant]
  11. FINASTERIDE [Concomitant]
  12. ARICEPT [Concomitant]

REACTIONS (6)
  - FATIGUE [None]
  - DIARRHOEA [None]
  - NAUSEA [None]
  - BONE PAIN [None]
  - MUSCLE SPASMS [None]
  - VOMITING [None]
